FAERS Safety Report 18807016 (Version 2)
Quarter: 2021Q1

REPORT INFORMATION
  Report Type: Spontaneous
  Country: FR (occurrence: FR)
  Receive Date: 20210129
  Receipt Date: 20210217
  Transmission Date: 20210419
  Serious: Yes (Hospitalization, Other)
  Sender: FDA-Public Use
  Company Number: FR-AUROBINDO-AUR-APL-2021-003715

PATIENT
  Age: 82 Year
  Sex: Male
  Weight: 81 kg

DRUGS (11)
  1. PANTOPRAZOLE SODIUM. [Suspect]
     Active Substance: PANTOPRAZOLE SODIUM
     Indication: GASTRITIS PROPHYLAXIS
     Dosage: 40 MILLIGRAM
     Route: 042
     Dates: start: 20201221
  2. TOPALGIC (TRAMADOL HYDROCHLORIDE) [Suspect]
     Active Substance: TRAMADOL HYDROCHLORIDE
     Indication: PAIN
     Dosage: UNK
     Route: 042
     Dates: start: 20201212
  3. BACLOFENE [Concomitant]
     Active Substance: BACLOFEN
     Indication: PRODUCT USED FOR UNKNOWN INDICATION
     Dosage: UNK
     Route: 065
  4. PARACETAMOL [Suspect]
     Active Substance: ACETAMINOPHEN
     Indication: PAIN
     Dosage: UNK
     Route: 042
     Dates: start: 20201222, end: 20201231
  5. MODOPAR [Concomitant]
     Active Substance: BENSERAZIDE HYDROCHLORIDE\LEVODOPA
     Indication: PRODUCT USED FOR UNKNOWN INDICATION
     Dosage: UNK
     Route: 065
  6. TOPALGIC (TRAMADOL HYDROCHLORIDE) [Suspect]
     Active Substance: TRAMADOL HYDROCHLORIDE
     Dosage: UNK
     Route: 042
     Dates: start: 20201222
  7. BRICANYL [Suspect]
     Active Substance: TERBUTALINE SULFATE
     Indication: ASTHMA
     Dosage: 5 GRAM
     Route: 055
     Dates: start: 20201222
  8. URAPIDIL [Suspect]
     Active Substance: URAPIDIL
     Indication: HYPERTENSION
     Dosage: UNK
     Route: 042
     Dates: start: 20201226, end: 20201231
  9. CALCIPARINE [Suspect]
     Active Substance: HEPARIN CALCIUM
     Indication: THROMBOSIS PROPHYLAXIS
     Dosage: 10000 INTERNATIONAL UNIT, ONCE A DAY
     Route: 042
     Dates: start: 20201221, end: 20210106
  10. PIPERACILLIN SODIUM [Suspect]
     Active Substance: PIPERACILLIN SODIUM
     Indication: ANTIBIOTIC THERAPY
     Dosage: 12 GRAM, ONCE A DAY
     Route: 042
     Dates: start: 20201224, end: 20210102
  11. LYRICA [Concomitant]
     Active Substance: PREGABALIN
     Indication: PRODUCT USED FOR UNKNOWN INDICATION
     Dosage: UNK
     Route: 065

REACTIONS (1)
  - Mixed liver injury [Not Recovered/Not Resolved]

NARRATIVE: CASE EVENT DATE: 20201228
